FAERS Safety Report 12267950 (Version 1)
Quarter: 2016Q2

REPORT INFORMATION
  Report Type: Spontaneous
  Country: US (occurrence: US)
  Receive Date: 20160414
  Receipt Date: 20160414
  Transmission Date: 20160815
  Serious: Yes (Hospitalization)
  Sender: FDA-Public Use
  Company Number: US-UNITED THERAPEUTICS-UNT-2016-004852

PATIENT
  Age: 64 Year
  Sex: Female
  Weight: 69.98 kg

DRUGS (2)
  1. LETAIRIS [Concomitant]
     Active Substance: AMBRISENTAN
     Indication: PRODUCT USED FOR UNKNOWN INDICATION
  2. TYVASO [Suspect]
     Active Substance: TREPROSTINIL
     Indication: PULMONARY ARTERIAL HYPERTENSION
     Dosage: 18-90 ?G, QID
     Dates: start: 20151209

REACTIONS (4)
  - Product use issue [Unknown]
  - Drug dose omission [Unknown]
  - Treatment noncompliance [Unknown]
  - Influenza [Unknown]

NARRATIVE: CASE EVENT DATE: 201603
